FAERS Safety Report 8954360 (Version 2)
Quarter: 2013Q1

REPORT INFORMATION
  Report Type: Spontaneous
  Country: FR (occurrence: None)
  Receive Date: 20121130
  Receipt Date: 20121221
  Transmission Date: 20140127
  Serious: Yes (Hospitalization)
  Sender: FDA-Public Use
  Company Number: 2012000252

PATIENT
  Age: 68 Year
  Sex: Male

DRUGS (11)
  1. ACEON (PERINDOPRIL ERBUMINE) TABLET [Suspect]
     Route: 048
  2. ADRIBLASTINE [Suspect]
     Indication: SMALL CELL LUNG CANCER EXTENSIVE STAGE
     Route: 042
     Dates: start: 20120917, end: 20120917
  3. ENDOXAN [Suspect]
     Indication: SMALL CELL LUNG CANCER EXTENSIVE STAGE
     Route: 042
     Dates: start: 20120917, end: 20120917
  4. CARBOPLATIN (CARBOPLATIN) [Suspect]
     Indication: SMALL CELL LUNG CANCER EXTENSIVE STAGE
     Route: 042
     Dates: start: 20120620, end: 20120820
  5. ETOPOPHOS (ETOPOSIDE PHOSPHATE) [Suspect]
     Indication: SMALL CELL LUNG CANCER EXTENSIVE STAGE
     Route: 042
     Dates: start: 20120620, end: 20120917
  6. GLUCOPHAGE [Suspect]
     Route: 048
  7. TEMERIT [Suspect]
     Route: 048
  8. LERCAN [Suspect]
     Route: 048
  9. TAHOR [Suspect]
     Route: 048
  10. PLAVIX (CLOPIDOGREL) [Suspect]
     Route: 048
  11. NOVONORM [Suspect]
     Route: 048

REACTIONS (3)
  - Sinoatrial block [None]
  - Syncope [None]
  - Sinus arrhythmia [None]
